FAERS Safety Report 10360404 (Version 1)
Quarter: 2014Q3

REPORT INFORMATION
  Report Type: Spontaneous
  Country: US (occurrence: None)
  Receive Date: 20140801
  Receipt Date: 20140801
  Transmission Date: 20150326
  Serious: No
  Sender: FDA-Public Use
  Company Number: None

PATIENT
  Age: 57 Year
  Sex: Male
  Weight: 196.41 kg

DRUGS (2)
  1. REMICADE [Suspect]
     Active Substance: INFLIXIMAB
     Indication: HIDRADENITIS
     Dosage: 900 MG  Q 8 WK  IV
     Route: 042
     Dates: start: 20140102
  2. FLUCONAZOLE. [Concomitant]
     Active Substance: FLUCONAZOLE

REACTIONS (3)
  - Urticaria [None]
  - Rash generalised [None]
  - Skin exfoliation [None]
